FAERS Safety Report 4963343-9 (Version None)
Quarter: 2006Q2

REPORT INFORMATION
  Report Type: 
  Country: None (occurrence: None)
  Receive Date: 20060404
  Receipt Date: 20060404
  Transmission Date: 20061013
  Serious: Yes (Hospitalization)
  Sender: FDA-Public Use
  Company Number: None

PATIENT
  Age: 75 Year
  Sex: Male

DRUGS (2)
  1. RISPERIDONE [Suspect]
     Dosage: 4 MG PO QHS
     Route: 048
     Dates: start: 20050822, end: 20060210
  2. OLANZAPINE [Suspect]
     Dosage: 12.5 MG PO Q HS
     Route: 048
     Dates: start: 20060201, end: 20060210

REACTIONS (4)
  - DRY MOUTH [None]
  - HYPOTENSION [None]
  - INCORRECT DOSE ADMINISTERED [None]
  - SOMNOLENCE [None]
